FAERS Safety Report 23357373 (Version 1)
Quarter: 2024Q1

REPORT INFORMATION
  Report Type: Spontaneous
  Country: FR (occurrence: FR)
  Receive Date: 20240102
  Receipt Date: 20240102
  Transmission Date: 20240410
  Serious: Yes (Hospitalization, Other)
  Sender: FDA-Public Use
  Company Number: FR-HIKMA PHARMACEUTICALS-FR-H14001-23-68029

PATIENT
  Age: 44 Year
  Sex: Female

DRUGS (7)
  1. CARBOPLATIN [Suspect]
     Active Substance: CARBOPLATIN
     Indication: Anal squamous cell carcinoma
     Dosage: AUC 5, ON DAY ONE OF EACH 28 DAY CYCLE
     Route: 042
     Dates: start: 20230619
  2. CARBOPLATIN [Suspect]
     Active Substance: CARBOPLATIN
     Dosage: AUC 4
     Route: 042
     Dates: start: 20230724
  3. PACLITAXEL [Suspect]
     Active Substance: PACLITAXEL
     Indication: Anal squamous cell carcinoma
     Dosage: 80 MILLIGRAM/SQ. METER
     Route: 042
     Dates: start: 20230626
  4. PACLITAXEL [Suspect]
     Active Substance: PACLITAXEL
     Dosage: 80 MILLIGRAM/SQ. METER (ON DAY 1, 8 AND 15 OF EACH 28 DAY CYCLE)
     Route: 042
     Dates: start: 20230619
  5. PACLITAXEL [Suspect]
     Active Substance: PACLITAXEL
     Dosage: 80 MILLIGRAM/SQ. METER
     Route: 042
     Dates: start: 20230703
  6. PACLITAXEL [Suspect]
     Active Substance: PACLITAXEL
     Dosage: 70 MILLIGRAM/SQ. METER
     Route: 042
     Dates: start: 20230724
  7. RETIFANLIMAB [Suspect]
     Active Substance: RETIFANLIMAB
     Indication: Anal squamous cell carcinoma
     Dosage: 500 MILLIGRAM (ON DAY ONE OF EACH 28-DAY CYCLE)
     Route: 042
     Dates: start: 20230619

REACTIONS (1)
  - Female genital tract fistula [Recovered/Resolved]

NARRATIVE: CASE EVENT DATE: 20230810
